FAERS Safety Report 10279777 (Version 2)
Quarter: 2014Q3

REPORT INFORMATION
  Report Type: Spontaneous
  Country: CN (occurrence: CN)
  Receive Date: 20140707
  Receipt Date: 20140707
  Transmission Date: 20150326
  Serious: Yes (Death, Hospitalization, Other)
  Sender: FDA-Public Use
  Company Number: CN-JNJFOC-20111111909

PATIENT
  Age: 74 Year
  Sex: Male

DRUGS (1)
  1. IMODIUM [Suspect]
     Active Substance: LOPERAMIDE HYDROCHLORIDE
     Indication: DIARRHOEA
     Dosage: 2-8 MG (1-4 PILLS) A DAY, FOR SEVERAL YEARS
     Route: 048
     Dates: start: 20081130, end: 20111015

REACTIONS (5)
  - Renal failure [Fatal]
  - Urinary retention [Not Recovered/Not Resolved]
  - Generalised oedema [Not Recovered/Not Resolved]
  - Asthenia [Not Recovered/Not Resolved]
  - Decreased appetite [Not Recovered/Not Resolved]

NARRATIVE: CASE EVENT DATE: 20111015
